FAERS Safety Report 8091396-0 (Version None)
Quarter: 2012Q1

REPORT INFORMATION
  Report Type: 
  Country: None (occurrence: None)
  Receive Date: 20120129
  Receipt Date: 20111031
  Transmission Date: 20120608
  Serious: No
  Sender: FDA-Public Use
  Company Number: US-ABBOTT-11P-163-0870621-00

PATIENT
  Sex: Female
  Weight: 49.032 kg

DRUGS (5)
  1. VOLTAREN [Concomitant]
     Indication: RHEUMATOID ARTHRITIS
  2. ARAVA [Concomitant]
     Indication: RHEUMATOID ARTHRITIS
  3. HUMIRA [Suspect]
     Indication: RHEUMATOID ARTHRITIS
     Dates: start: 20101101, end: 20110101
  4. HUMIRA [Suspect]
     Dates: start: 20110101, end: 20110501
  5. HUMIRA [Suspect]
     Dates: start: 20110608, end: 20111026

REACTIONS (1)
  - DRUG INEFFECTIVE [None]
